FAERS Safety Report 7914941 (Version 4)
Quarter: 2013Q1

REPORT INFORMATION
  Report Type: Spontaneous
  Country: US (occurrence: US)
  Receive Date: 20110426
  Receipt Date: 20130201
  Transmission Date: 20140127
  Serious: Yes (Other)
  Sender: FDA-Public Use
  Company Number: US-ALEXION-A201100560

PATIENT
  Age: 80 Year
  Sex: Male
  Weight: 73 kg

DRUGS (14)
  1. SOLIRIS 300MG [Suspect]
     Indication: PAROXYSMAL NOCTURNAL HAEMOGLOBINURIA
     Dosage: 600 MG, QW
     Route: 042
     Dates: start: 2011
  2. SOLIRIS 300MG [Suspect]
     Dosage: 900 MG, Q2W
     Route: 042
     Dates: start: 20110331
  3. FOLIC ACID [Concomitant]
     Dosage: 1 MG, QD
     Route: 048
  4. PLAVIX [Concomitant]
     Dosage: 75 MG, QD
     Route: 048
  5. LEXAPRO [Concomitant]
     Dosage: 10 MG, QD
     Route: 048
  6. ATENOLOL [Concomitant]
     Dosage: 50 MG, QD
     Route: 048
  7. AVODART [Concomitant]
     Dosage: 0.5 MG, QD
     Route: 048
  8. CARDIZEM [Concomitant]
     Dosage: 100 MG, QD
     Route: 048
  9. LIPITOR [Concomitant]
     Dosage: 80 MG, QD
     Route: 048
  10. ZETIA [Concomitant]
     Dosage: QD
     Route: 048
  11. ASPIRIN [Concomitant]
     Dosage: 81 MG, QD
     Route: 048
  12. ATIVAN [Concomitant]
     Dosage: 1 MG, QD
     Route: 048
  13. PREVACID [Concomitant]
     Dosage: 15 MG, QD
     Route: 048
  14. BLOOD TRANSFUSION, AUXILIARY PRODUCTS [Concomitant]
     Dosage: UNK
     Route: 042

REACTIONS (3)
  - Lobar pneumonia [Recovering/Resolving]
  - Nausea [Recovered/Resolved]
  - Dizziness [Not Recovered/Not Resolved]
